FAERS Safety Report 4923297-8 (Version None)
Quarter: 2006Q1

REPORT INFORMATION
  Report Type: 
  Country: None (occurrence: None)
  Receive Date: 20060223
  Receipt Date: 20060223
  Transmission Date: 20060701
  Serious: Yes (Death, Life-Threatening, Hospitalization)
  Sender: FDA-Public Use
  Company Number: None

PATIENT
  Age: 60 Year
  Sex: Female

DRUGS (1)
  1. THALOMID [Suspect]
     Indication: MENTAL DISORDER
     Dates: start: 20030801, end: 20051213

REACTIONS (7)
  - ABNORMAL BEHAVIOUR [None]
  - COMPLETED SUICIDE [None]
  - INJURY ASPHYXIATION [None]
  - INTENTIONAL OVERDOSE [None]
  - MENTAL DISORDER [None]
  - PERSONALITY CHANGE [None]
  - SUICIDE ATTEMPT [None]
